FAERS Safety Report 4444525-1 (Version None)
Quarter: 2004Q3

REPORT INFORMATION
  Report Type: 
  Country: None (occurrence: None)
  Receive Date: 20040902
  Receipt Date: 20040826
  Transmission Date: 20050211
  Serious: Yes (Life-Threatening, Hospitalization)
  Sender: FDA-Public Use
  Company Number: 200420423BWH

PATIENT
  Age: 59 Year
  Sex: Female

DRUGS (1)
  1. AVELOX [Suspect]
     Dosage: 400 MG, QD, ORAL
     Route: 048
     Dates: start: 20040730, end: 20040804

REACTIONS (1)
  - PANCYTOPENIA [None]
